FAERS Safety Report 25628783 (Version 1)
Quarter: 2025Q3

REPORT INFORMATION
  Report Type: Spontaneous
  Country: US (occurrence: US)
  Receive Date: 20250731
  Receipt Date: 20250731
  Transmission Date: 20251020
  Serious: Yes (Life-Threatening, Hospitalization, Other)
  Sender: CIPLA
  Company Number: US-MLMSERVICE-20250711-PI573453-00083-1

PATIENT

DRUGS (3)
  1. HYDRALAZINE [Suspect]
     Active Substance: HYDRALAZINE HYDROCHLORIDE
     Route: 048
  2. CARVEDILOL [Suspect]
     Active Substance: CARVEDILOL
     Route: 048
  3. ISOSORBIDE [Suspect]
     Active Substance: ISOSORBIDE
     Route: 048

REACTIONS (4)
  - Suicide attempt [Unknown]
  - Intentional overdose [Unknown]
  - Acidosis [Recovered/Resolved]
  - Shock [Recovered/Resolved]
